FAERS Safety Report 8697637 (Version 2)
Quarter: 2012Q4

REPORT INFORMATION
  Report Type: 
  Country: JP (occurrence: JP)
  Receive Date: 20120801
  Receipt Date: 20121022
  Transmission Date: 20130627
  Serious: Yes (Other)
  Sender: FDA-Public Use
  Company Number: JP-009507513-1207JPN011032

PATIENT
  Age: 55 Year
  Sex: Male

DRUGS (3)
  1. PEGINTRON [Suspect]
     Dosage: 100 UNK, qw
     Route: 058
     Dates: start: 20120210, end: 20120628
  2. REBETOL [Suspect]
     Route: 048
     Dates: start: 20120220, end: 20120712
  3. TELAPREVIR [Suspect]
     Route: 048
     Dates: start: 20120210, end: 20120503

REACTIONS (7)
  - Rash [Not Recovered/Not Resolved]
  - Lip erosion [None]
  - Penile ulceration [None]
  - Anal erosion [None]
  - Skin erosion [None]
  - Generalised erythema [None]
  - Drug eruption [None]
